FAERS Safety Report 25191614 (Version 1)
Quarter: 2025Q2

REPORT INFORMATION
  Report Type: Spontaneous
  Country: US (occurrence: None)
  Receive Date: 20250411
  Receipt Date: 20250411
  Transmission Date: 20250716
  Serious: No
  Sender: FDA-CTU
  Company Number: None

PATIENT
  Age: 65 Year
  Sex: Female
  Weight: 95.4 kg

DRUGS (17)
  1. NIACINAMIDE\TIRZEPATIDE [Suspect]
     Active Substance: NIACINAMIDE\TIRZEPATIDE
     Indication: Weight decreased
  2. NIACINAMIDE\TIRZEPATIDE [Suspect]
     Active Substance: NIACINAMIDE\TIRZEPATIDE
     Indication: Sleep apnoea syndrome
  3. PROZAC [Concomitant]
     Active Substance: FLUOXETINE HYDROCHLORIDE
  4. LASIX [Concomitant]
     Active Substance: FUROSEMIDE
  5. ATORVASTATIN [Concomitant]
     Active Substance: ATORVASTATIN
  6. FOSAMAX [Concomitant]
     Active Substance: ALENDRONATE SODIUM
  7. DICLOFENAC [Concomitant]
     Active Substance: DICLOFENAC
  8. Zytec [Concomitant]
  9. IRON\VITAMINS [Concomitant]
     Active Substance: IRON\VITAMINS
  10. VITAMIN B COMPLEX [Concomitant]
     Active Substance: CYANOCOBALAMIN\DEXPANTHENOL\NIACINAMIDE\PYRIDOXINE HYDROCHLORIDE\RIBOFLAVIN 5^-PHOSPHATE SODIUM\THIA
  11. VITAMINS [Concomitant]
     Active Substance: VITAMINS
  12. VITAMIN D3 [Concomitant]
     Active Substance: CHOLECALCIFEROL
  13. AZO [Concomitant]
     Active Substance: PHENAZOPYRIDINE HYDROCHLORIDE
  14. CALCIUM [Concomitant]
     Active Substance: CALCIUM
  15. OMEPRAZOLE [Concomitant]
     Active Substance: OMEPRAZOLE
  16. PROBIOTICS NOS [Concomitant]
     Active Substance: PROBIOTICS NOS
  17. FLONASE [Concomitant]
     Active Substance: FLUTICASONE PROPIONATE

REACTIONS (4)
  - Injection site rash [None]
  - Injection site pruritus [None]
  - Injection site pain [None]
  - Injection site bruising [None]
